FAERS Safety Report 12208498 (Version 1)
Quarter: 2016Q1

REPORT INFORMATION
  Report Type: Spontaneous
  Country: DE (occurrence: DE)
  Receive Date: 20160324
  Receipt Date: 20160324
  Transmission Date: 20160526
  Serious: Yes (Other)
  Sender: FDA-Public Use
  Company Number: DE-ASTRAZENECA-2016SE22097

PATIENT
  Sex: Female
  Weight: 70 kg

DRUGS (7)
  1. FASLODEX [Suspect]
     Active Substance: FULVESTRANT
     Route: 030
     Dates: start: 20150831, end: 20150831
  2. NOVAMINSULFON [Concomitant]
     Active Substance: METAMIZOLE
     Dosage: 500 MG QID
  3. TRAMADOL RETARD [Concomitant]
     Active Substance: TRAMADOL
     Dosage: 100-150 MG DAILY
     Dates: start: 2001
  4. NOVAMINSULFON [Concomitant]
     Active Substance: METAMIZOLE
     Dosage: INCREASED UP TO 200 MG/D.
  5. THYROID [Concomitant]
     Active Substance: LEVOTHYROXINE\LIOTHYRONINE
  6. FASLODEX [Suspect]
     Active Substance: FULVESTRANT
     Route: 030
     Dates: start: 20150914, end: 20150914
  7. FASLODEX [Suspect]
     Active Substance: FULVESTRANT
     Route: 030
     Dates: start: 20151123, end: 20151123

REACTIONS (10)
  - Neuralgia [Unknown]
  - Back pain [Unknown]
  - Hyperhidrosis [Unknown]
  - Arthralgia [Unknown]
  - Nerve injury [Unknown]
  - Injection site erythema [Unknown]
  - Headache [Unknown]
  - Injection site pain [Unknown]
  - Injection site nodule [Unknown]
  - Myalgia [Recovered/Resolved]
